FAERS Safety Report 20336156 (Version 1)
Quarter: 2022Q1

REPORT INFORMATION
  Report Type: Spontaneous
  Country: US (occurrence: US)
  Receive Date: 20220114
  Receipt Date: 20220114
  Transmission Date: 20220423
  Serious: No
  Sender: FDA-Public Use
  Company Number: US-PFIZER INC-2021513628

PATIENT
  Age: 30 Year
  Sex: Female

DRUGS (1)
  1. ZOLOFT [Suspect]
     Active Substance: SERTRALINE HYDROCHLORIDE
     Dosage: 100 MG, 1X/DAY (IN MORNING)

REACTIONS (3)
  - Maternal exposure during pregnancy [Unknown]
  - Soliloquy [Unknown]
  - Drug screen positive [Unknown]
